FAERS Safety Report 5525242-3 (Version None)
Quarter: 2007Q4

REPORT INFORMATION
  Report Type: 
  Country: None (occurrence: None)
  Receive Date: 20071120
  Receipt Date: 20071113
  Transmission Date: 20080405
  Serious: Yes (Other)
  Sender: FDA-Public Use
  Company Number: 163-21880-07110793

PATIENT
  Age: 77 Year
  Sex: Female

DRUGS (3)
  1. REVLIMID [Suspect]
     Indication: MULTIPLE MYELOMA
     Dosage: 10 MG, ORAL, 25 MG, ORAL, 15 MG, ORAL
     Route: 048
     Dates: start: 20060216, end: 20061001
  2. REVLIMID [Suspect]
     Indication: MULTIPLE MYELOMA
     Dosage: 10 MG, ORAL, 25 MG, ORAL, 15 MG, ORAL
     Route: 048
     Dates: start: 20061020, end: 20061101
  3. REVLIMID [Suspect]
     Indication: MULTIPLE MYELOMA
     Dosage: 10 MG, ORAL, 25 MG, ORAL, 15 MG, ORAL
     Route: 048
     Dates: start: 20061121

REACTIONS (2)
  - COMA [None]
  - NEUROPATHY PERIPHERAL [None]
